FAERS Safety Report 8163195-2 (Version None)
Quarter: 2012Q1

REPORT INFORMATION
  Report Type: 
  Country: None (occurrence: None)
  Receive Date: 20120224
  Receipt Date: 20110617
  Transmission Date: 20120608
  Serious: No
  Sender: FDA-Public Use
  Company Number: US-PFIZER INC-K201100729

PATIENT
  Age: 83 Year
  Sex: Female

DRUGS (2)
  1. FLECTOR [Suspect]
     Indication: MUSCULOSKELETAL PAIN
     Dosage: 1 PATCH, SINGLE
     Route: 061
     Dates: start: 20110616, end: 20110616
  2. FLECTOR [Suspect]
     Indication: NECK PAIN

REACTIONS (1)
  - APPLICATION SITE RASH [None]
